FAERS Safety Report 12966824 (Version 1)
Quarter: 2016Q4

REPORT INFORMATION
  Report Type: Spontaneous
  Country: US (occurrence: US)
  Receive Date: 20161121
  Receipt Date: 20161121
  Transmission Date: 20170207
  Serious: No
  Sender: FDA-Public Use
  Company Number: None

PATIENT
  Age: 83 Year
  Sex: Male
  Weight: 59.4 kg

DRUGS (11)
  1. SIMVASTATIN. [Concomitant]
     Active Substance: SIMVASTATIN
  2. RANEXA [Suspect]
     Active Substance: RANOLAZINE
     Indication: ANGINA PECTORIS
     Dates: start: 20161108, end: 20161121
  3. VITAMIN K2 [Concomitant]
     Active Substance: MENAQUINONE 6
  4. LICORICE. [Concomitant]
     Active Substance: LICORICE
  5. ENALAPRI [Concomitant]
     Active Substance: ENALAPRIL\HYDROCHLOROTHIAZIDE
  6. ECOTRIN [Concomitant]
     Active Substance: ASPIRIN
  7. COCONUT OIL [Concomitant]
     Active Substance: COCONUT OIL
  8. E- NALAPRI [Concomitant]
  9. VITAMIN D [Concomitant]
     Active Substance: CHOLECALCIFEROL
  10. AMLODIPINE [Concomitant]
     Active Substance: AMLODIPINE BESYLATE
  11. CINNAMON. [Concomitant]
     Active Substance: CINNAMON

REACTIONS (1)
  - Chromaturia [None]

NARRATIVE: CASE EVENT DATE: 20161121
